FAERS Safety Report 12187803 (Version 2)
Quarter: 2016Q2

REPORT INFORMATION
  Report Type: Report from Study
  Country: US (occurrence: US)
  Receive Date: 20160317
  Receipt Date: 20160520
  Transmission Date: 20160815
  Serious: Yes (Death, Hospitalization)
  Sender: FDA-Public Use
  Company Number: US-ACTELION-A-NJ2016-132618

PATIENT
  Age: 19 Month
  Sex: Female

DRUGS (8)
  1. SPIRONOLACTONE. [Concomitant]
     Active Substance: SPIRONOLACTONE
     Dosage: 10 MG/ML, UNK
  2. POTASSIUM CHLORIDE. [Concomitant]
     Active Substance: POTASSIUM CHLORIDE
     Dosage: 20 MEQ/ML, UNK
  3. FUROSEMIDE. [Concomitant]
     Active Substance: FUROSEMIDE
     Dosage: 10 MG/ML, UNK
  4. METOCLOPRAMIDE. [Concomitant]
     Active Substance: METOCLOPRAMIDE
     Dosage: 5 MG/ML, UNK
  5. ASPIRIN. [Concomitant]
     Active Substance: ASPIRIN
     Dosage: 81 MG, UNK
  6. TRACLEER [Suspect]
     Active Substance: BOSENTAN
     Indication: PULMONARY ARTERIAL HYPERTENSION
     Dosage: 15.6 MG, BID
     Route: 048
     Dates: start: 201508, end: 201512
  7. METOLAZONE. [Concomitant]
     Active Substance: METOLAZONE
     Dosage: 1 MG/ML, UNK
  8. RANITIDINE HCL [Concomitant]
     Active Substance: RANITIDINE HYDROCHLORIDE
     Dosage: 15 MG/ML, UNK

REACTIONS (5)
  - Respiratory distress [Fatal]
  - Bone density decreased [Unknown]
  - Femur fracture [Unknown]
  - Cardiac arrest [Fatal]
  - Anaesthetic complication [Fatal]

NARRATIVE: CASE EVENT DATE: 20160228
